FAERS Safety Report 19510067 (Version 1)
Quarter: 2021Q3

REPORT INFORMATION
  Report Type: Report from Study
  Country: US (occurrence: US)
  Receive Date: 20210708
  Receipt Date: 20210708
  Transmission Date: 20211014
  Serious: Yes (Hospitalization)
  Sender: FDA-Public Use
  Company Number: US-GILEAD-2021-0529206

PATIENT
  Age: 67 Year
  Sex: Male
  Weight: 113.4 kg

DRUGS (5)
  1. SACITUZUMAB GOVITECAN. [Suspect]
     Active Substance: SACITUZUMAB GOVITECAN
     Dosage: 10 MG/KG; DAYS 1 AND 8 OF 21 DAY CYCLE
     Route: 042
     Dates: start: 20210205, end: 20210205
  2. SACITUZUMAB GOVITECAN. [Suspect]
     Active Substance: SACITUZUMAB GOVITECAN
     Dosage: 1156 MG; DAYS 1 AND 8 OF 21 DAY CYCLE
     Route: 042
     Dates: start: 20210129, end: 20210129
  3. CABOZANTINIB [Suspect]
     Active Substance: CABOZANTINIB
     Indication: PRODUCT USED FOR UNKNOWN INDICATION
     Dosage: UNK
     Route: 065
  4. SACITUZUMAB GOVITECAN. [Suspect]
     Active Substance: SACITUZUMAB GOVITECAN
     Dosage: 1156 MG; DAYS 1 AND 8 OF 21 DAY CYCLE
     Route: 042
     Dates: start: 20210205, end: 20210205
  5. SACITUZUMAB GOVITECAN. [Suspect]
     Active Substance: SACITUZUMAB GOVITECAN
     Indication: TRANSITIONAL CELL CANCER OF THE RENAL PELVIS AND URETER
     Dosage: 10 MG/KG; DAYS 1 AND 8 OF 21 DAY CYCLE
     Route: 042
     Dates: start: 20210129, end: 20210129

REACTIONS (2)
  - Colitis [Recovered/Resolved]
  - Anaemia [Recovered/Resolved with Sequelae]

NARRATIVE: CASE EVENT DATE: 20210210
